FAERS Safety Report 14327788 (Version 1)
Quarter: 2017Q4

REPORT INFORMATION
  Report Type: Spontaneous
  Country: US (occurrence: US)
  Receive Date: 20171227
  Receipt Date: 20171227
  Transmission Date: 20180321
  Serious: No
  Sender: FDA-Public Use
  Company Number: US-PFIZER INC-2017546874

PATIENT
  Sex: Male

DRUGS (3)
  1. ADVIL [Suspect]
     Active Substance: IBUPROFEN
  2. TYLENOL [Interacting]
     Active Substance: ACETAMINOPHEN
  3. ASPIRIN /00002701/ [Interacting]
     Active Substance: ASPIRIN

REACTIONS (3)
  - Drug interaction [Unknown]
  - Urticaria [Unknown]
  - Acne [Unknown]
